FAERS Safety Report 5636715-7 (Version None)
Quarter: 2008Q1

REPORT INFORMATION
  Report Type: 
  Country: None (occurrence: None)
  Receive Date: 20080225
  Receipt Date: 20080219
  Transmission Date: 20080703
  Serious: Yes (Other)
  Sender: FDA-Public Use
  Company Number: ES-ELI_LILLY_AND_COMPANY-ES200712002714

PATIENT
  Sex: Male

DRUGS (4)
  1. OLANZAPINE [Suspect]
     Dosage: UNK, UNK
  2. ANTIDEPRESSANTS [Concomitant]
     Indication: DEPRESSION
  3. ANTIEPILEPTICS [Concomitant]
     Indication: EPILEPSY
  4. ANXIOLYTICS [Concomitant]
     Indication: ANXIETY

REACTIONS (1)
  - HEPATITIS C [None]
